FAERS Safety Report 23674599 (Version 2)
Quarter: 2024Q3

REPORT INFORMATION
  Report Type: Other
  Country: US (occurrence: US)
  Receive Date: 20240326
  Receipt Date: 20240730
  Transmission Date: 20241017
  Serious: No
  Sender: TRAVERE THERAPEUTICS
  Company Number: US-TRAVERE-2024TVT00271

PATIENT
  Age: 34 Year
  Sex: Male

DRUGS (2)
  1. FILSPARI [Suspect]
     Active Substance: SPARSENTAN
     Indication: Haematuria
     Dosage: TAKE 1 TABLET BY MOUTH 1 TIME A DAY FOR DAYS 1-14
     Route: 048
     Dates: start: 202402
  2. FILSPARI [Suspect]
     Active Substance: SPARSENTAN
     Indication: IgA nephropathy
     Dosage: 2 TABLETS BY MOUTH 1 TIME A DAY ON DAYS 15-30
     Route: 048

REACTIONS (2)
  - Ear discomfort [Unknown]
  - Protein urine present [Unknown]

NARRATIVE: CASE EVENT DATE: 20240201
